FAERS Safety Report 19925304 (Version 2)
Quarter: 2022Q4

REPORT INFORMATION
  Report Type: Report from Study
  Country: IT (occurrence: IT)
  Receive Date: 20211006
  Receipt Date: 20221010
  Transmission Date: 20230113
  Serious: Yes (Life-Threatening)
  Sender: FDA-Public Use
  Company Number: IT-ACCORD-240526

PATIENT
  Age: 63 Year
  Sex: Female

DRUGS (2)
  1. PACLITAXEL [Suspect]
     Active Substance: PACLITAXEL
     Indication: HER2 positive breast cancer
  2. TRASTUZUMAB [Suspect]
     Active Substance: TRASTUZUMAB
     Indication: HER2 positive breast cancer

REACTIONS (3)
  - Tachycardia [Recovering/Resolving]
  - Sense of oppression [Recovering/Resolving]
  - Chest pain [Recovering/Resolving]
